FAERS Safety Report 15159745 (Version 2)
Quarter: 2018Q4

REPORT INFORMATION
  Report Type: Report from Study
  Country: US (occurrence: US)
  Receive Date: 20180718
  Receipt Date: 20181015
  Transmission Date: 20190204
  Serious: Yes (Other)
  Sender: FDA-Public Use
  Company Number: US-BRISTOL-MYERS SQUIBB COMPANY-BMS-2018-065699

PATIENT
  Sex: Male

DRUGS (1)
  1. IPILIMUMAB [Suspect]
     Active Substance: IPILIMUMAB
     Indication: MALIGNANT MELANOMA
     Dosage: 10 MG/KG  (1100MG) , Q3MO ( 84 DAYS)
     Route: 042
     Dates: start: 20170526

REACTIONS (2)
  - Weight decreased [Unknown]
  - Malignant neoplasm progression [Unknown]
